FAERS Safety Report 4977593-9 (Version None)
Quarter: 2006Q2

REPORT INFORMATION
  Report Type: 
  Country: None (occurrence: None)
  Receive Date: 20060414
  Receipt Date: 20060403
  Transmission Date: 20061013
  Serious: Yes (Hospitalization)
  Sender: FDA-Public Use
  Company Number: 2006-140952-NL

PATIENT
  Age: 73 Year
  Sex: Female

DRUGS (7)
  1. MIRTAZAPINE [Suspect]
     Indication: DEPRESSION
     Dosage: 30 MG QD ORAL
     Route: 048
     Dates: end: 20050304
  2. DIPHENOXYLATE HYDROCHLORIDE [Suspect]
     Dosage: 2.5 MG PRN ORAL
     Route: 048
     Dates: end: 20060304
  3. RISPERIDONE [Suspect]
     Dosage: 1 MG QD ORAL
     Route: 048
     Dates: start: 20040715, end: 20050304
  4. COLOXYL WITH SENNA [Concomitant]
  5. PARACETAMOL [Concomitant]
  6. OMEPRAZOLE [Concomitant]
  7. TRIMETHOPRIM [Concomitant]

REACTIONS (3)
  - EXTRAPYRAMIDAL DISORDER [None]
  - NEUROLEPTIC MALIGNANT SYNDROME [None]
  - SEDATION [None]
